FAERS Safety Report 9293381 (Version 1)
Quarter: 2013Q2

REPORT INFORMATION
  Report Type: Spontaneous
  Country: US (occurrence: US)
  Receive Date: 20130516
  Receipt Date: 20130516
  Transmission Date: 20140414
  Serious: No
  Sender: FDA-Public Use
  Company Number: US-ASTRAZENECA-2013SE31658

PATIENT
  Age: 71 Year
  Sex: Female
  Weight: 72.6 kg

DRUGS (7)
  1. NEXIUM [Suspect]
     Indication: GASTROOESOPHAGEAL REFLUX DISEASE
     Route: 048
  2. AMLODIPINE [Concomitant]
  3. LEVOTHYROXINE [Concomitant]
  4. LOVASTATIN [Concomitant]
  5. MECLIZINE (PRN) [Concomitant]
  6. FLAX SEED OIL [Concomitant]
  7. Q10 [Concomitant]

REACTIONS (2)
  - Dysphonia [Unknown]
  - Off label use [Unknown]
